FAERS Safety Report 24634946 (Version 1)
Quarter: 2024Q4

REPORT INFORMATION
  Report Type: Spontaneous
  Country: SE (occurrence: SE)
  Receive Date: 20241119
  Receipt Date: 20241119
  Transmission Date: 20250115
  Serious: Yes (Other)
  Sender: SANOFI AVENTIS
  Company Number: SE-SA-2024SA331338

PATIENT
  Age: 76 Year
  Sex: Female

DRUGS (1)
  1. MULTAQ [Suspect]
     Active Substance: DRONEDARONE
     Indication: Product used for unknown indication
     Dosage: UNK
     Route: 065
     Dates: end: 20230912

REACTIONS (1)
  - Organising pneumonia [Unknown]

NARRATIVE: CASE EVENT DATE: 20230530
